FAERS Safety Report 8272434-9 (Version None)
Quarter: 2012Q2

REPORT INFORMATION
  Report Type: 
  Country: None (occurrence: None)
  Receive Date: 20120410
  Receipt Date: 20120406
  Transmission Date: 20120825
  Serious: Yes (Other)
  Sender: FDA-Public Use
  Company Number: US-BAYER-2012-034208

PATIENT

DRUGS (1)
  1. SODIUM BICARBONATE [Suspect]
     Route: 048

REACTIONS (1)
  - ULCER [None]
